FAERS Safety Report 4839586-1 (Version None)
Quarter: 2005Q4

REPORT INFORMATION
  Report Type: 
  Country: None (occurrence: None)
  Receive Date: 20051128
  Receipt Date: 20051128
  Transmission Date: 20060501
  Serious: Yes (Disabling)
  Sender: FDA-Public Use
  Company Number: None

PATIENT
  Sex: Female
  Weight: 68.0396 kg

DRUGS (7)
  1. JANTOVEN [Suspect]
     Indication: DEEP VEIN THROMBOSIS
     Dosage: 5MG 4 DAYS PER WEEK,  2.5 MG 3 DAYS PER WEEK  PO
     Route: 048
     Dates: start: 20051026, end: 20051113
  2. UNIRETIC [Concomitant]
  3. PREDNISONE [Concomitant]
  4. CLONIDINE [Concomitant]
  5. ALBUTEROL [Concomitant]
  6. ADVAIR DISKUS 100/50 [Concomitant]
  7. DARVOCET-N 100 [Concomitant]

REACTIONS (4)
  - FEELING HOT [None]
  - OEDEMA PERIPHERAL [None]
  - PAIN IN EXTREMITY [None]
  - PHARMACEUTICAL PRODUCT COMPLAINT [None]
